FAERS Safety Report 7249517-5 (Version None)
Quarter: 2011Q1

REPORT INFORMATION
  Report Type: 
  Country: None (occurrence: None)
  Receive Date: 20110128
  Receipt Date: 20101222
  Transmission Date: 20110831
  Serious: Yes (Hospitalization, Other)
  Sender: FDA-Public Use
  Company Number: GB-BAYER-2010-008462

PATIENT
  Age: 24 Year
  Sex: Female
  Weight: 70 kg

DRUGS (2)
  1. CIPROXIN [Suspect]
     Indication: LOWER RESPIRATORY TRACT INFECTION
  2. CIPROXIN [Suspect]
     Indication: STAPHYLOCOCCAL INFECTION
     Dosage: UNK
     Dates: start: 20101209, end: 20101214

REACTIONS (1)
  - ANAPHYLACTIC REACTION [None]
